FAERS Safety Report 10052506 (Version 2)
Quarter: 2014Q2

REPORT INFORMATION
  Report Type: Report from Study
  Country: US (occurrence: US)
  Receive Date: 20140402
  Receipt Date: 20140430
  Transmission Date: 20141212
  Serious: Yes (Other)
  Sender: FDA-Public Use
  Company Number: US-ROCHE-1374043

PATIENT
  Age: 77 Year
  Sex: Female
  Weight: 63.56 kg

DRUGS (16)
  1. TARCEVA [Suspect]
     Indication: LUNG NEOPLASM MALIGNANT
     Route: 048
     Dates: start: 201402
  2. AVASTIN [Suspect]
     Indication: LUNG NEOPLASM MALIGNANT
     Route: 042
     Dates: start: 201009, end: 201308
  3. AVASTIN [Suspect]
     Route: 065
     Dates: start: 20111125
  4. DOXYCYCLINE [Suspect]
     Indication: LUNG NEOPLASM MALIGNANT
     Route: 048
     Dates: start: 201402
  5. LIPITOR [Concomitant]
     Indication: BLOOD CHOLESTEROL
     Route: 048
  6. DIGOXIN [Concomitant]
     Indication: CARDIAC FIBRILLATION
     Route: 048
  7. DOXAZOSIN [Concomitant]
     Indication: CARDIAC DISORDER
     Route: 048
  8. PAROXETINE [Concomitant]
     Indication: CARDIAC DISORDER
     Route: 048
  9. LEVOTHROID [Concomitant]
     Indication: THYROID DISORDER
     Route: 048
  10. DILTIAZEM [Concomitant]
     Route: 065
  11. FUROSEMIDE [Concomitant]
     Route: 065
  12. ATENOLOL [Concomitant]
     Indication: CARDIAC DISORDER
     Route: 065
  13. LOSARTAN POTASSIUM [Concomitant]
     Route: 065
  14. PRADAXA [Concomitant]
     Indication: ANTICOAGULANT THERAPY
     Route: 065
  15. ZOLPIDEM [Concomitant]
  16. PROCRIT [Concomitant]
     Dosage: 40000 UNITS WEEKLY
     Route: 065
     Dates: start: 20140407

REACTIONS (8)
  - Haemorrhage [Not Recovered/Not Resolved]
  - Renal failure [Recovered/Resolved]
  - Rash [Recovering/Resolving]
  - Dyspnoea [Not Recovered/Not Resolved]
  - Decreased appetite [Not Recovered/Not Resolved]
  - Gait disturbance [Not Recovered/Not Resolved]
  - Erythema [Recovered/Resolved]
  - Oedema [Recovered/Resolved]
